FAERS Safety Report 10527282 (Version 1)
Quarter: 2014Q4

REPORT INFORMATION
  Report Type: Spontaneous
  Country: CO (occurrence: None)
  Receive Date: 20141016
  Receipt Date: 20141016
  Transmission Date: 20150528
  Serious: Yes (Death, Hospitalization, Other)
  Sender: FDA-Public Use
  Company Number: 2014-20493

PATIENT
  Age: 81 Year
  Sex: Female

DRUGS (1)
  1. EYLEA [Suspect]
     Active Substance: AFLIBERCEPT
     Indication: AGE-RELATED MACULAR DEGENERATION
     Dates: start: 20121218

REACTIONS (4)
  - Fall [None]
  - Craniocerebral injury [None]
  - Cardio-respiratory arrest [None]
  - Cerebral thrombosis [None]

NARRATIVE: CASE EVENT DATE: 20140809
